FAERS Safety Report 9856384 (Version 2)
Quarter: 2014Q1

REPORT INFORMATION
  Report Type: Spontaneous
  Country: US (occurrence: US)
  Receive Date: 20140130
  Receipt Date: 20140220
  Transmission Date: 20141002
  Serious: Yes (Other)
  Sender: FDA-Public Use
  Company Number: US-ABBVIE-14P-163-1193220-00

PATIENT
  Age: 22 Year
  Sex: Female
  Weight: 48 kg

DRUGS (10)
  1. HUMIRA [Suspect]
     Indication: COLITIS
     Route: 058
     Dates: start: 2006, end: 2007
  2. HUMIRA [Suspect]
     Route: 058
     Dates: start: 2007, end: 2007
  3. HUMIRA [Suspect]
     Route: 058
     Dates: start: 2007, end: 2007
  4. HUMIRA [Suspect]
     Route: 058
     Dates: start: 2007, end: 20131231
  5. CALCIUM [Concomitant]
     Indication: INFLAMMATORY BOWEL DISEASE
  6. OMEPRAZOLE [Concomitant]
     Indication: PRODUCT USED FOR UNKNOWN INDICATION
  7. MULTIVITAMIN [Concomitant]
     Indication: PRODUCT USED FOR UNKNOWN INDICATION
  8. CALTRATE [Concomitant]
     Indication: PRODUCT USED FOR UNKNOWN INDICATION
  9. BUDESONIDE [Concomitant]
     Indication: PRODUCT USED FOR UNKNOWN INDICATION
  10. FLORASTOR [Concomitant]
     Indication: PRODUCT USED FOR UNKNOWN INDICATION

REACTIONS (11)
  - Cholangitis sclerosing [Unknown]
  - Adenocarcinoma of colon [Not Recovered/Not Resolved]
  - Colon dysplasia [Not Recovered/Not Resolved]
  - Large intestine polyp [Unknown]
  - Large intestine polyp [Not Recovered/Not Resolved]
  - Paraesthesia [Recovered/Resolved]
  - Paraesthesia [Recovered/Resolved]
  - Colon dysplasia [Not Recovered/Not Resolved]
  - Drug ineffective [Recovered/Resolved]
  - Off label use [Unknown]
  - Inflammatory bowel disease [Unknown]
